FAERS Safety Report 21938090 (Version 3)
Quarter: 2023Q2

REPORT INFORMATION
  Report Type: Spontaneous
  Country: US (occurrence: US)
  Receive Date: 20230201
  Receipt Date: 20230412
  Transmission Date: 20230721
  Serious: No
  Sender: FDA-Public Use
  Company Number: US-PFIZER INC-PV202300017708

PATIENT
  Age: 66 Year
  Sex: Female

DRUGS (1)
  1. XELJANZ XR [Suspect]
     Active Substance: TOFACITINIB CITRATE
     Indication: Rheumatoid arthritis
     Dosage: 11 MG, DAILY
     Route: 048
     Dates: start: 2022

REACTIONS (13)
  - Condition aggravated [Recovering/Resolving]
  - Malaise [Unknown]
  - Abdominal discomfort [Unknown]
  - Vomiting [Unknown]
  - Pruritus [Unknown]
  - Scab [Unknown]
  - Nasal congestion [Unknown]
  - Cough [Unknown]
  - Product dose omission in error [Unknown]
  - Therapeutic product effect decreased [Unknown]
  - Cystitis interstitial [Recovering/Resolving]
  - Fibromyalgia [Recovering/Resolving]
  - Osteoarthritis [Recovering/Resolving]

NARRATIVE: CASE EVENT DATE: 20230101
